FAERS Safety Report 6217671-X (Version None)
Quarter: 2009Q2

REPORT INFORMATION
  Report Type: 
  Country: None (occurrence: None)
  Receive Date: 20090608
  Receipt Date: 20090602
  Transmission Date: 20091009
  Serious: No
  Sender: FDA-Public Use
  Company Number: US-B.I. PHARMACEUTICALS,INC./RIDGEFIELD-2009-BP-06213BP

PATIENT
  Sex: Female

DRUGS (7)
  1. SPIRIVA [Suspect]
     Indication: CHRONIC OBSTRUCTIVE PULMONARY DISEASE
     Dosage: 18MCG
     Route: 055
     Dates: start: 20070101
  2. SPIRIVA [Suspect]
     Indication: ASTHMA
  3. ENALAPRIL MALEATE [Concomitant]
  4. PULMICORT [Concomitant]
  5. CALCIUM [Concomitant]
  6. VIT C [Concomitant]
  7. ACID REDUCER [Concomitant]

REACTIONS (2)
  - LOCALISED INFECTION [None]
  - SKIN LACERATION [None]
